FAERS Safety Report 6785467-6 (Version None)
Quarter: 2010Q2

REPORT INFORMATION
  Report Type: 
  Country: None (occurrence: None)
  Receive Date: 20100623
  Receipt Date: 20100611
  Transmission Date: 20101027
  Serious: No
  Sender: FDA-Public Use
  Company Number: US-BIOGENIDEC-2010BI020193

PATIENT
  Sex: Female

DRUGS (3)
  1. AVONEX [Suspect]
     Indication: MULTIPLE SCLEROSIS
     Route: 030
     Dates: start: 20000707, end: 20030110
  2. AVONEX [Suspect]
     Route: 030
     Dates: start: 20050402, end: 20060104
  3. AVONEX [Suspect]
     Route: 030
     Dates: start: 20061010

REACTIONS (1)
  - INJECTION SITE HAEMORRHAGE [None]
